FAERS Safety Report 4486901-7 (Version None)
Quarter: 2004Q3

REPORT INFORMATION
  Report Type: 
  Country: None (occurrence: None)
  Receive Date: 20040921
  Receipt Date: 20031006
  Transmission Date: 20050211
  Serious: Yes (Other)
  Sender: FDA-Public Use
  Company Number: 163-20785-03100167

PATIENT
  Age: 84 Year
  Sex: Female

DRUGS (1)
  1. THALOMID [Suspect]
     Indication: THROMBOCYTOPENIA
     Dosage: 50 MG, DAILY, ORAL
     Route: 048
     Dates: start: 20030911, end: 20030101

REACTIONS (6)
  - ASTHENIA [None]
  - DYSPNOEA [None]
  - HYPOAESTHESIA [None]
  - OEDEMA PERIPHERAL [None]
  - PHARYNGITIS [None]
  - PHARYNGOLARYNGEAL PAIN [None]
